FAERS Safety Report 8195417-6 (Version None)
Quarter: 2012Q1

REPORT INFORMATION
  Report Type: 
  Country: None (occurrence: None)
  Receive Date: 20120308
  Receipt Date: 20120229
  Transmission Date: 20120608
  Serious: Yes (Other)
  Sender: FDA-Public Use
  Company Number: PHHY2012CA018163

PATIENT
  Sex: Male

DRUGS (18)
  1. METHOTREXATE [Concomitant]
     Dosage: UNK UKN, UNK
  2. PANTOPRAZOLE SODIUM [Concomitant]
     Dosage: UNK UKN, UNK
  3. TYLENOL [Concomitant]
     Dosage: UNK UKN, UNK
  4. CLOBAZAM [Concomitant]
     Dosage: UNK UKN, UNK
  5. TEGRETOL-XR [Suspect]
     Dosage: UNK UKN, UNK
  6. METOPROLOL SUCCINATE [Concomitant]
     Dosage: UNK UKN, UNK
  7. COLECALCIFEROL [Concomitant]
     Dosage: UNK UKN, UNK
  8. OXYBUTYNIN [Concomitant]
     Dosage: UNK UKN, UNK
  9. FLOMAX [Concomitant]
     Dosage: UNK UKN, UNK
  10. FOLIC ACID [Concomitant]
     Dosage: UNK UKN, UNK
  11. PREDNISONE TAB [Concomitant]
     Dosage: UNK UKN, UNK
  12. ARTHROTEC [Concomitant]
     Dosage: UNK UKN, UNK
  13. SEROQUEL [Concomitant]
     Dosage: UNK UKN, UNK
  14. SODIUM CHLORIDE [Concomitant]
     Dosage: UNK UKN, UNK
  15. DOCUSATE [Concomitant]
     Dosage: UNK UKN, UNK
  16. PRIMIDONE [Concomitant]
     Dosage: UNK UKN, UNK
  17. ZOLEDRONOC ACID [Suspect]
     Indication: OSTEOPOROSIS
     Dosage: 5 MG, UNK
     Route: 042
     Dates: start: 20120228
  18. CALCIUM [Concomitant]
     Dosage: UNK UKN, UNK

REACTIONS (5)
  - LOSS OF CONSCIOUSNESS [None]
  - FLUSHING [None]
  - MYALGIA [None]
  - DIZZINESS [None]
  - FEELING HOT [None]
